FAERS Safety Report 17557392 (Version 2)
Quarter: 2020Q1

REPORT INFORMATION
  Report Type: Spontaneous
  Country: CA (occurrence: CA)
  Receive Date: 20200318
  Receipt Date: 20200319
  Transmission Date: 20200409
  Serious: Yes (Other)
  Sender: FDA-Public Use
  Company Number: CA-PFIZER INC-2019491603

PATIENT
  Age: 45 Year
  Sex: Female

DRUGS (1)
  1. XELJANZ [Suspect]
     Active Substance: TOFACITINIB CITRATE
     Indication: RHEUMATOID ARTHRITIS
     Dosage: 5 MG, 2X/DAY
     Route: 048
     Dates: start: 20191204

REACTIONS (27)
  - Feeling abnormal [Unknown]
  - Oropharyngeal pain [Unknown]
  - Dyspnoea [Unknown]
  - Asthma [Unknown]
  - Insomnia [Unknown]
  - Abdominal pain upper [Unknown]
  - Eye discharge [Unknown]
  - Dyspepsia [Unknown]
  - Dizziness [Unknown]
  - Headache [Unknown]
  - Visual impairment [Unknown]
  - Dehydration [Unknown]
  - Angina pectoris [Unknown]
  - Therapeutic product effect incomplete [Unknown]
  - Cough [Not Recovered/Not Resolved]
  - Back pain [Not Recovered/Not Resolved]
  - Weight increased [Unknown]
  - Chest discomfort [Not Recovered/Not Resolved]
  - Nasopharyngitis [Unknown]
  - Heart rate increased [Unknown]
  - Dry throat [Unknown]
  - Smoke sensitivity [Unknown]
  - Sluggishness [Unknown]
  - Pyrexia [Not Recovered/Not Resolved]
  - Fatigue [Unknown]
  - Parosmia [Not Recovered/Not Resolved]
  - Energy increased [Unknown]

NARRATIVE: CASE EVENT DATE: 201912
